FAERS Safety Report 4310349-9 (Version None)
Quarter: 2004Q1

REPORT INFORMATION
  Report Type: 
  Country: None (occurrence: None)
  Receive Date: 20040303
  Receipt Date: 20040105
  Transmission Date: 20041129
  Serious: Yes (Other)
  Sender: FDA-Public Use
  Company Number: GB-ROCHE-355117

PATIENT
  Age: 21 Year
  Sex: Male

DRUGS (1)
  1. LARIAM [Suspect]
     Indication: MALARIA PROPHYLAXIS
     Route: 048
     Dates: start: 20040103, end: 20040103

REACTIONS (8)
  - DIZZINESS [None]
  - MEDICATION ERROR [None]
  - MUCOSAL INFLAMMATION [None]
  - MUSCLE SPASMS [None]
  - ORAL MUCOSAL BLISTERING [None]
  - PALPITATIONS [None]
  - PHARMACEUTICAL PRODUCT COMPLAINT [None]
  - THROAT IRRITATION [None]
